FAERS Safety Report 21831716 (Version 3)
Quarter: 2023Q2

REPORT INFORMATION
  Report Type: Spontaneous
  Country: AE (occurrence: AE)
  Receive Date: 20230106
  Receipt Date: 20230517
  Transmission Date: 20230722
  Serious: Yes (Death)
  Sender: FDA-Public Use
  Company Number: AE-002147023-NVSC2023AE003084

PATIENT
  Age: 19 Month
  Weight: 9.7 kg

DRUGS (2)
  1. ZOLGENSMA [Suspect]
     Active Substance: ONASEMNOGENE ABEPARVOVEC-XIOI
     Indication: Product used for unknown indication
     Dosage: 55 ML
     Route: 065
     Dates: start: 20220621
  2. ZOLGENSMA [Suspect]
     Active Substance: ONASEMNOGENE ABEPARVOVEC-XIOI
     Dosage: UNK, ONCE/SINGLE
     Route: 042
     Dates: start: 202207

REACTIONS (1)
  - Choking [Fatal]
